FAERS Safety Report 5765967-8 (Version None)
Quarter: 2008Q2

REPORT INFORMATION
  Report Type: 
  Country: None (occurrence: None)
  Receive Date: 20080611
  Receipt Date: 20080221
  Transmission Date: 20081010
  Serious: Yes (Hospitalization)
  Sender: FDA-Public Use
  Company Number: US-BRISTOL-MYERS SQUIBB COMPANY-14097307

PATIENT
  Age: 61 Year
  Sex: Male

DRUGS (1)
  1. CARBIDOPA + LEVODOPA [Suspect]
     Indication: PARKINSON'S DISEASE
     Dosage: 1 DOSAGE FORM = 25/100MG
     Route: 048
     Dates: start: 20051109

REACTIONS (3)
  - AGITATION [None]
  - DISTURBANCE IN ATTENTION [None]
  - DYSTONIA [None]
